FAERS Safety Report 6570398-7 (Version None)
Quarter: 2010Q1

REPORT INFORMATION
  Report Type: 
  Country: None (occurrence: None)
  Receive Date: 20100204
  Receipt Date: 20090211
  Transmission Date: 20100710
  Serious: No
  Sender: FDA-Public Use
  Company Number: A0768212A

PATIENT
  Age: 90 Year
  Sex: Male

DRUGS (5)
  1. ARIXTRA [Suspect]
     Dosage: 7.5MG PER DAY
     Route: 058
     Dates: start: 20080501
  2. PROSCAR [Concomitant]
  3. ASPIRIN [Concomitant]
  4. COLACE [Concomitant]
  5. CALCIUM [Concomitant]

REACTIONS (2)
  - INJECTION SITE PRURITUS [None]
  - SKIN DISCOLOURATION [None]
